FAERS Safety Report 11810774 (Version 1)
Quarter: 2015Q4

REPORT INFORMATION
  Report Type: Spontaneous
  Country: US (occurrence: US)
  Receive Date: 20151208
  Receipt Date: 20151208
  Transmission Date: 20160305
  Serious: No
  Sender: FDA-Public Use
  Company Number: US-GLAXOSMITHKLINE-US2015152976

PATIENT
  Age: 64 Year
  Sex: Female

DRUGS (1)
  1. WELLBUTRIN SR [Suspect]
     Active Substance: BUPROPION HYDROCHLORIDE
     Indication: PRODUCT USED FOR UNKNOWN INDICATION
     Dosage: 100 MG, QD
     Dates: start: 20151023

REACTIONS (4)
  - Headache [Unknown]
  - Concussion [Unknown]
  - Confusional state [Unknown]
  - Head injury [Unknown]

NARRATIVE: CASE EVENT DATE: 20151023
